FAERS Safety Report 6386380-9 (Version None)
Quarter: 2009Q3

REPORT INFORMATION
  Report Type: 
  Country: None (occurrence: None)
  Receive Date: 20090930
  Receipt Date: 20090930
  Transmission Date: 20100115
  Serious: Yes (Hospitalization)
  Sender: FDA-Public Use
  Company Number: None

PATIENT
  Age: 39 Year
  Sex: Female
  Weight: 84.2 kg

DRUGS (12)
  1. CLOZAPINE [Suspect]
     Indication: SCHIZOAFFECTIVE DISORDER
     Dosage: 100MG QHS PO
     Route: 048
     Dates: start: 20090831, end: 20090926
  2. LORAZEPAM [Concomitant]
  3. IBUPROFEN [Concomitant]
  4. AMRIX [Concomitant]
  5. RISPERDAL [Concomitant]
  6. LISINOPRIL AND HYDROCHLOROTHIAZIDE [Concomitant]
  7. NORVASC [Concomitant]
  8. EFFEXOR XR [Concomitant]
  9. BENZTROPINE MESYLATE [Concomitant]
  10. BIOTIN [Concomitant]
  11. VITAMIN E [Concomitant]
  12. ONDANSETRON [Concomitant]

REACTIONS (3)
  - CARDIAC FAILURE [None]
  - DYSPNOEA [None]
  - ORTHOPNOEA [None]
